FAERS Safety Report 12741885 (Version 2)
Quarter: 2016Q3

REPORT INFORMATION
  Report Type: Other
  Country: FI (occurrence: FI)
  Receive Date: 20160914
  Receipt Date: 20160920
  Transmission Date: 20161109
  Serious: Yes (Hospitalization, Other)
  Sender: FDA-Public Use
  Company Number: FI-CELLTRION HEALTHCARE HUNGARY KFT-2016FI008827

PATIENT

DRUGS (10)
  1. CALCICHEW D3 FORTE MINTTU [Concomitant]
     Dosage: 2 DF, DAILY
     Route: 048
     Dates: start: 20160614
  2. REMSIMA [Suspect]
     Active Substance: INFLIXIMAB
     Indication: COLITIS ULCERATIVE
     Dosage: 300 MG/4, UNK
     Route: 042
     Dates: start: 20160421, end: 20160421
  3. ASACOL [Concomitant]
     Active Substance: MESALAMINE
     Dosage: 3.2 G, DAILY
     Route: 048
     Dates: start: 20151029, end: 20160627
  4. REMSIMA [Suspect]
     Active Substance: INFLIXIMAB
     Dosage: 300 MG, UNK
     Route: 042
     Dates: start: 20160504, end: 20160504
  5. REMSIMA [Suspect]
     Active Substance: INFLIXIMAB
     Dosage: 300 MG, UNK
     Route: 042
     Dates: start: 20160518, end: 20160518
  6. VALCYTE [Concomitant]
     Active Substance: VALGANCICLOVIR HYDROCHLORIDE
     Dosage: 900 MG, DAILY
     Route: 048
     Dates: start: 20160704, end: 20160711
  7. TRIKOZOL [Concomitant]
     Dosage: 1.2 G, DAILY
     Route: 048
     Dates: start: 20160628, end: 20160711
  8. CYMEVENE                           /00784201/ [Concomitant]
     Active Substance: GANCICLOVIR
     Dosage: 500 MG, DAILY
     Route: 042
     Dates: start: 20160628, end: 20160630
  9. REMSIMA [Suspect]
     Active Substance: INFLIXIMAB
     Dosage: 300 MG, UNK
     Route: 042
     Dates: start: 20160601, end: 20160601
  10. MERCAPTOPURINE. [Concomitant]
     Active Substance: MERCAPTOPURINE
     Dosage: 75 MG, DAILY
     Route: 048
     Dates: start: 20151201, end: 20160627

REACTIONS (4)
  - Cytomegalovirus infection [Not Recovered/Not Resolved]
  - Inappropriate schedule of drug administration [Unknown]
  - Drug ineffective [Unknown]
  - Febrile neutropenia [Not Recovered/Not Resolved]

NARRATIVE: CASE EVENT DATE: 20160711
